FAERS Safety Report 12712461 (Version 1)
Quarter: 2016Q3

REPORT INFORMATION
  Report Type: Spontaneous
  Country: CN (occurrence: CN)
  Receive Date: 20160902
  Receipt Date: 20160902
  Transmission Date: 20161109
  Serious: Yes (Death, Other)
  Sender: FDA-Public Use
  Company Number: CN-BAYER-2016-165634

PATIENT
  Age: 40 Year
  Sex: Male

DRUGS (1)
  1. SORAFENIB (RAF KINASE INHIBITOR) [Suspect]
     Active Substance: SORAFENIB
     Indication: HEPATOCELLULAR CARCINOMA

REACTIONS (4)
  - Hepatic vein stenosis [None]
  - Budd-Chiari syndrome [None]
  - Venoocclusive liver disease [None]
  - Hepatocellular carcinoma [Fatal]
